FAERS Safety Report 6303129-6 (Version None)
Quarter: 2009Q3

REPORT INFORMATION
  Report Type: 
  Country: None (occurrence: None)
  Receive Date: 20090810
  Receipt Date: 20090803
  Transmission Date: 20100115
  Serious: Yes (Death)
  Sender: FDA-Public Use
  Company Number: BE-MERCK-0908BEL00003

PATIENT
  Age: 46 Year
  Sex: Male
  Weight: 63 kg

DRUGS (6)
  1. CANCIDAS [Suspect]
     Indication: EVIDENCE BASED TREATMENT
     Route: 041
     Dates: start: 20080622, end: 20080622
  2. CANCIDAS [Suspect]
     Route: 041
     Dates: start: 20080623, end: 20080629
  3. METRONIDAZOLE [Concomitant]
     Indication: BACTERIAL INFECTION
     Route: 065
     Dates: start: 20080622, end: 20080630
  4. PIPERACILLIN SODIUM AND TAZOBACTAM SODIUM [Concomitant]
     Indication: BACTERIAL INFECTION
     Route: 065
     Dates: start: 20080622, end: 20080626
  5. VANCOMYCIN [Concomitant]
     Indication: BACTERIAL INFECTION
     Route: 065
     Dates: start: 20080624, end: 20080629
  6. POSACONAZOLE [Concomitant]
     Route: 048
     Dates: start: 20080613, end: 20080623

REACTIONS (1)
  - HAEMORRHAGE [None]
